FAERS Safety Report 14270844 (Version 1)
Quarter: 2017Q4

REPORT INFORMATION
  Report Type: Spontaneous
  Country: US (occurrence: US)
  Receive Date: 20171211
  Receipt Date: 20171211
  Transmission Date: 20180321
  Serious: Yes (Hospitalization)
  Sender: FDA-Public Use
  Company Number: US-CELGENEUS-USA-20171200505

PATIENT
  Age: 74 Year
  Sex: Female

DRUGS (7)
  1. POMALYST [Suspect]
     Active Substance: POMALIDOMIDE
     Indication: PLASMA CELL MYELOMA
     Dosage: 2 MILLIGRAM
     Route: 048
     Dates: start: 20170715
  2. CALCITONIN [Concomitant]
     Active Substance: CALCITONIN
     Indication: PRODUCT USED FOR UNKNOWN INDICATION
     Route: 065
  3. CITRACAL [Concomitant]
     Active Substance: CALCIUM CITRATE
     Indication: PRODUCT USED FOR UNKNOWN INDICATION
     Route: 065
  4. OSTEO BI-FLEX [Concomitant]
     Active Substance: CHONDROITIN SULFATE A\GLUCOSAMINE
     Indication: PRODUCT USED FOR UNKNOWN INDICATION
     Route: 065
  5. RABEPRAZOLE SODIUM. [Concomitant]
     Active Substance: RABEPRAZOLE SODIUM
     Indication: PRODUCT USED FOR UNKNOWN INDICATION
     Route: 065
  6. LOVASTATIN. [Concomitant]
     Active Substance: LOVASTATIN
     Indication: PRODUCT USED FOR UNKNOWN INDICATION
     Route: 065
  7. VITAMIN D [Concomitant]
     Active Substance: CHOLECALCIFEROL
     Indication: PRODUCT USED FOR UNKNOWN INDICATION
     Route: 065

REACTIONS (1)
  - Pneumonia [Unknown]

NARRATIVE: CASE EVENT DATE: 20171120
